FAERS Safety Report 6483519-1 (Version None)
Quarter: 2009Q4

REPORT INFORMATION
  Report Type: 
  Country: None (occurrence: None)
  Receive Date: 20091208
  Receipt Date: 20091208
  Transmission Date: 20100525
  Serious: Yes (Life-Threatening, Hospitalization, Other)
  Sender: FDA-Public Use
  Company Number: None

PATIENT
  Sex: Male
  Weight: 32.659 kg

DRUGS (1)
  1. VYVANSE [Suspect]
     Indication: ATTENTION DEFICIT/HYPERACTIVITY DISORDER
     Dates: start: 20080107, end: 20091017

REACTIONS (7)
  - AGGRESSION [None]
  - EDUCATIONAL PROBLEM [None]
  - HOMICIDAL IDEATION [None]
  - MIDDLE INSOMNIA [None]
  - PERSONALITY CHANGE [None]
  - SUICIDE ATTEMPT [None]
  - ULCER HAEMORRHAGE [None]
